FAERS Safety Report 6418341-5 (Version None)
Quarter: 2009Q4

REPORT INFORMATION
  Report Type: 
  Country: None (occurrence: None)
  Receive Date: 20091021
  Receipt Date: 20090722
  Transmission Date: 20100525
  Serious: No
  Sender: FDA-Public Use
  Company Number: ALL1-2009-01723

PATIENT
  Age: 3 Year
  Sex: Male
  Weight: 18.5 kg

DRUGS (5)
  1. VYVANSE [Suspect]
     Indication: ATTENTION DEFICIT/HYPERACTIVITY DISORDER
     Dosage: 20 MG, 1X/DAY:QD, ORAL
     Route: 048
     Dates: start: 20090616, end: 20090616
  2. BACTROBAN [Concomitant]
  3. HYDROCORTONE [Concomitant]
  4. HYDROXIDE [Concomitant]
  5. TRIMAZOLE (CLOTRIMAZOLE) [Concomitant]

REACTIONS (7)
  - DYSKINESIA [None]
  - DYSPHEMIA [None]
  - HYPERSENSITIVITY [None]
  - NERVOUSNESS [None]
  - OFF LABEL USE [None]
  - PARANOIA [None]
  - TREMOR [None]
